FAERS Safety Report 6055842-6 (Version None)
Quarter: 2009Q1

REPORT INFORMATION
  Report Type: 
  Country: None (occurrence: None)
  Receive Date: 20090128
  Receipt Date: 20090122
  Transmission Date: 20090719
  Serious: Yes (Other)
  Sender: FDA-Public Use
  Company Number: CH-GENENTECH-268800

PATIENT
  Sex: Female

DRUGS (12)
  1. RAPTIVA [Suspect]
     Indication: PSORIASIS
     Dosage: 1 MG/KG, 1/WEEK
     Route: 058
     Dates: start: 20071113, end: 20071127
  2. DAIVOBET [Concomitant]
     Indication: PSORIASIS
     Dosage: 2-3X/WEEK
  3. HALCINONIDE [Concomitant]
     Indication: PSORIASIS
     Dosage: 2-3X/WEEK
  4. NEXIUM [Concomitant]
     Indication: DRUG USE FOR UNKNOWN INDICATION
     Dosage: UNK
  5. NICOTINE [Concomitant]
     Indication: DRUG USE FOR UNKNOWN INDICATION
     Dosage: UNK
  6. EXCIP FETTCREME [Concomitant]
     Indication: DRUG USE FOR UNKNOWN INDICATION
  7. EXCIP FETTSALBE [Concomitant]
     Indication: DRUG USE FOR UNKNOWN INDICATION
  8. MINERAL OIL EMULSION [Concomitant]
     Indication: DRUG USE FOR UNKNOWN INDICATION
  9. DEXTROMETHORPHAN HYDROBROMIDE [Concomitant]
     Indication: DRUG USE FOR UNKNOWN INDICATION
  10. ELOCON [Concomitant]
     Indication: DRUG USE FOR UNKNOWN INDICATION
  11. TELFAST [Concomitant]
     Indication: DRUG USE FOR UNKNOWN INDICATION
     Dosage: 120 MG, UNK
     Route: 048
  12. ATARAX [Concomitant]
     Indication: DRUG USE FOR UNKNOWN INDICATION
     Route: 048

REACTIONS (3)
  - EPIGASTRIC DISCOMFORT [None]
  - PSORIASIS [None]
  - TUBERCULOSIS [None]
